FAERS Safety Report 22714782 (Version 5)
Quarter: 2025Q3

REPORT INFORMATION
  Report Type: Report from Study
  Country: JP (occurrence: JP)
  Receive Date: 20230718
  Receipt Date: 20250702
  Transmission Date: 20251021
  Serious: Yes (Hospitalization, Other)
  Sender: TAKEDA
  Company Number: JP-TAKEDA-2023TJP009287

PATIENT
  Age: 5 Year
  Sex: Female

DRUGS (28)
  1. TEDUGLUTIDE [Suspect]
     Active Substance: TEDUGLUTIDE
     Indication: Short-bowel syndrome
  2. TEDUGLUTIDE [Suspect]
     Active Substance: TEDUGLUTIDE
  3. TEDUGLUTIDE [Suspect]
     Active Substance: TEDUGLUTIDE
  4. TEDUGLUTIDE [Suspect]
     Active Substance: TEDUGLUTIDE
  5. AMINO ACIDS\DEXTROSE\ELECTROLYTES NOS\MINERALS\VITAMINS [Concomitant]
     Active Substance: AMINO ACIDS\DEXTROSE\ELECTROLYTES NOS\MINERALS\VITAMINS
     Indication: Short-bowel syndrome
  6. DEXTROSE [Concomitant]
     Active Substance: DEXTROSE MONOHYDRATE
     Indication: Short-bowel syndrome
  7. SODIUM CHLORIDE [Concomitant]
     Active Substance: SODIUM CHLORIDE
     Indication: Short-bowel syndrome
  8. ASELEND [Concomitant]
     Indication: Short-bowel syndrome
  9. SOYBEAN OIL [Concomitant]
     Active Substance: SOYBEAN OIL
     Indication: Short-bowel syndrome
  10. MENATETRENONE [Concomitant]
     Active Substance: MENATETRENONE
     Indication: Short-bowel syndrome
  11. LEVOCARNITINE [Concomitant]
     Active Substance: LEVOCARNITINE
     Indication: Short-bowel syndrome
  12. HERBAL NOS [Concomitant]
     Active Substance: HERBALS
     Indication: Short-bowel syndrome
  13. NEXIUM [Concomitant]
     Active Substance: ESOMEPRAZOLE MAGNESIUM
     Indication: Short-bowel syndrome
  14. AMINO ACIDS\DEXTROSE\ELECTROLYTES NOS\SOYBEAN OIL\VITAMINS [Concomitant]
     Active Substance: AMINO ACIDS\DEXTROSE\ELECTROLYTES NOS\SOYBEAN OIL\VITAMINS
     Indication: Short-bowel syndrome
  15. TRICHLORMETHIAZIDE [Concomitant]
     Active Substance: TRICHLORMETHIAZIDE
  16. FUROSEMIDE [Concomitant]
     Active Substance: FUROSEMIDE
  17. SPIRONOLACTONE [Concomitant]
     Active Substance: SPIRONOLACTONE
  18. ENALAPRIL [Concomitant]
     Active Substance: ENALAPRIL
  19. ASPIRIN [Concomitant]
     Active Substance: ASPIRIN
  20. PIPERACILLIN SODIUM\TAZOBACTAM SODIUM [Concomitant]
     Active Substance: PIPERACILLIN SODIUM\TAZOBACTAM SODIUM
  21. VANCOMYCIN HYDROCHLORIDE [Concomitant]
     Active Substance: VANCOMYCIN HYDROCHLORIDE
  22. CEFAZOLIN SODIUM [Concomitant]
     Active Substance: CEFAZOLIN SODIUM
  23. FOSFLUCONAZOLE [Concomitant]
     Active Substance: FOSFLUCONAZOLE
  24. MICAFUNGIN SODIUM [Concomitant]
     Active Substance: MICAFUNGIN SODIUM
  25. ALCOHOL [Concomitant]
     Active Substance: ALCOHOL
  26. AMINO ACIDS\DEXTROSE\ELECTROLYTES NOS\SOYBEAN OIL\VITAMINS [Concomitant]
     Active Substance: AMINO ACIDS\DEXTROSE\ELECTROLYTES NOS\SOYBEAN OIL\VITAMINS
     Indication: Short-bowel syndrome
  27. MIYA-BM [Concomitant]
     Active Substance: CLOSTRIDIUM BUTYRICUM SPORES STRAIN M-55
     Indication: Short-bowel syndrome
  28. LANSOPRAZOLE [Concomitant]
     Active Substance: LANSOPRAZOLE
     Indication: Short-bowel syndrome

REACTIONS (6)
  - Device related bacteraemia [Recovering/Resolving]
  - Device related fungaemia [Recovered/Resolved]
  - Device related bacteraemia [Recovered/Resolved]
  - Device related fungaemia [Recovered/Resolved]
  - Coronavirus infection [Recovered/Resolved]
  - Catheter site granuloma [Recovered/Resolved]

NARRATIVE: CASE EVENT DATE: 20220801
